FAERS Safety Report 9556017 (Version 2)
Quarter: 2013Q3

REPORT INFORMATION
  Report Type: Spontaneous
  Country: GB (occurrence: None)
  Receive Date: 20130924
  Receipt Date: 20130930
  Transmission Date: 20140515
  Serious: Yes (Other)
  Sender: FDA-Public Use
  Company Number: KAD201309-001197

PATIENT
  Age: 51 Year
  Sex: Male

DRUGS (3)
  1. RIBAVIRIN [Suspect]
     Indication: HEPATITIS C
     Route: 048
     Dates: start: 20121111
  2. PEGINTERFERON ALFA-2B (PEGINTERFERON ALFA-2B) [Suspect]
     Indication: HEPATITIS C
     Route: 058
     Dates: start: 20121111
  3. INCIVO (TELAPREVIR) [Suspect]
     Indication: HEPATITIS C
     Route: 048
     Dates: start: 20121111

REACTIONS (7)
  - Anaemia [None]
  - Influenza [None]
  - Headache [None]
  - Rash [None]
  - Skin irritation [None]
  - Fatigue [None]
  - Rash [None]
